FAERS Safety Report 6740782-7 (Version None)
Quarter: 2010Q2

REPORT INFORMATION
  Report Type: 
  Country: None (occurrence: None)
  Receive Date: 20100525
  Receipt Date: 20100525
  Transmission Date: 20101027
  Serious: Yes (Hospitalization)
  Sender: FDA-Public Use
  Company Number: None

PATIENT
  Sex: Male

DRUGS (1)
  1. ACYCLOVIR [Suspect]
     Indication: ABDOMINAL PAIN

REACTIONS (3)
  - NEPHROPATHY TOXIC [None]
  - RENAL IMPAIRMENT [None]
  - RENAL INJURY [None]
